FAERS Safety Report 8879528 (Version 2)
Quarter: 2013Q1

REPORT INFORMATION
  Report Type: Report from Study
  Country: US (occurrence: US)
  Receive Date: 20121031
  Receipt Date: 20130215
  Transmission Date: 20140127
  Serious: Yes (Hospitalization, Other)
  Sender: FDA-Public Use
  Company Number: US-ABBOTT-12P-163-1000327-00

PATIENT
  Age: 31 None
  Sex: Female
  Weight: 63.56 kg

DRUGS (8)
  1. HUMIRA [Suspect]
     Indication: CROHN^S DISEASE
     Route: 058
     Dates: start: 201102, end: 20121011
  2. HUMIRA [Suspect]
     Indication: COLITIS
     Route: 058
     Dates: start: 20121020
  3. HUMIRA [Suspect]
     Indication: COLITIS ULCERATIVE
  4. VENLAFAXINE [Concomitant]
     Indication: ANXIETY
  5. GABAPENTIN [Concomitant]
     Indication: ARTHRITIS
  6. GABAPENTIN [Concomitant]
     Indication: CROHN^S DISEASE
  7. CYCLOBENZAPRINE [Concomitant]
     Indication: FIBROMYALGIA
     Dosage: AT BEDTIME
  8. LIALDA [Concomitant]
     Indication: COLITIS
     Dosage: 4 PILLS

REACTIONS (10)
  - Ileus paralytic [Recovered/Resolved]
  - Enteritis [Recovering/Resolving]
  - Colitis ulcerative [Unknown]
  - Abdominal pain [Recovering/Resolving]
  - White blood cell count increased [Unknown]
  - Diarrhoea [Recovered/Resolved]
  - Nausea [Not Recovered/Not Resolved]
  - Abdominal tenderness [Recovering/Resolving]
  - White blood cell count increased [Unknown]
  - Abdominal pain [Unknown]
